FAERS Safety Report 15071163 (Version 1)
Quarter: 2018Q2

REPORT INFORMATION
  Report Type: Report from Study
  Country: US (occurrence: US)
  Receive Date: 20180626
  Receipt Date: 20180626
  Transmission Date: 20180711
  Serious: No
  Sender: FDA-Public Use
  Company Number: US-AMGEN-USASL2015001851

PATIENT
  Sex: Female

DRUGS (1)
  1. PROLIA [Suspect]
     Active Substance: DENOSUMAB
     Indication: TEMPORAL ARTERITIS
     Dosage: UNK
     Route: 065

REACTIONS (2)
  - Tremor [Unknown]
  - Alopecia [Unknown]

NARRATIVE: CASE EVENT DATE: 2014
